FAERS Safety Report 9760413 (Version 2)
Quarter: 2014Q1

REPORT INFORMATION
  Report Type: Spontaneous
  Country: US (occurrence: None)
  Receive Date: 20131212
  Receipt Date: 20140122
  Transmission Date: 20141002
  Serious: Yes (Other)
  Sender: FDA-Public Use
  Company Number: 2013AP010370

PATIENT
  Sex: Female

DRUGS (1)
  1. IMIQUIMOD [Suspect]

REACTIONS (2)
  - Hypersensitivity [None]
  - Condition aggravated [None]
